FAERS Safety Report 25784815 (Version 2)
Quarter: 2025Q3

REPORT INFORMATION
  Report Type: Report from Study
  Country: CA (occurrence: CA)
  Receive Date: 20250910
  Receipt Date: 20250911
  Transmission Date: 20251021
  Serious: Yes (Hospitalization, Other)
  Sender: ABBVIE
  Company Number: CA-ABBVIE-6448333

PATIENT
  Age: 29 Year
  Sex: Female

DRUGS (2)
  1. SKYRIZI [Suspect]
     Active Substance: RISANKIZUMAB-RZAA
     Indication: Crohn^s disease
     Route: 058
  2. TYLENOL [Suspect]
     Active Substance: ACETAMINOPHEN
     Indication: Product used for unknown indication
     Route: 065

REACTIONS (10)
  - Ileocaecal resection [Unknown]
  - Crohn^s disease [Unknown]
  - Proctalgia [Unknown]
  - Dyspnoea [Unknown]
  - Tachycardia [Unknown]
  - Hepatic enzyme abnormal [Unknown]
  - Eye swelling [Recovering/Resolving]
  - Pyrexia [Unknown]
  - Impaired healing [Unknown]
  - Dyspareunia [Unknown]

NARRATIVE: CASE EVENT DATE: 20250101
